FAERS Safety Report 7386120-0 (Version None)
Quarter: 2011Q1

REPORT INFORMATION
  Report Type: 
  Country: None (occurrence: None)
  Receive Date: 20110314
  Receipt Date: 20110302
  Transmission Date: 20110831
  Serious: Yes (Death, Hospitalization)
  Sender: FDA-Public Use
  Company Number: 2010PROUSA00141

PATIENT
  Age: 70 Year
  Sex: Male
  Weight: 86.2 kg

DRUGS (2)
  1. PROVENGE [Suspect]
     Indication: PROSTATE CANCER METASTATIC
     Dosage: 250 ML, SINGLE; INTRAVENOUS
     Route: 011
     Dates: start: 20101111, end: 20101111
  2. PROVENGE [Suspect]
     Indication: PROSTATE CANCER METASTATIC
     Dosage: 250 ML, SINGLE; INTRAVENOUS
     Route: 011
     Dates: start: 20101202, end: 20101202

REACTIONS (8)
  - SPINAL CORD COMPRESSION [None]
  - RENAL FAILURE [None]
  - SMALL INTESTINAL OBSTRUCTION [None]
  - BLOOD POTASSIUM DECREASED [None]
  - TUMOUR COMPRESSION [None]
  - SPINAL CORD NEOPLASM [None]
  - CHROMATURIA [None]
  - DEHYDRATION [None]
